FAERS Safety Report 5930527-2 (Version None)
Quarter: 2008Q4

REPORT INFORMATION
  Report Type: 
  Country: None (occurrence: None)
  Receive Date: 20081026
  Receipt Date: 20081017
  Transmission Date: 20090506
  Serious: Yes (Hospitalization)
  Sender: FDA-Public Use
  Company Number: PHHY2008CH25034

PATIENT
  Age: 93 Year
  Sex: Female

DRUGS (1)
  1. EXELON [Suspect]
     Dosage: ONE SINGLE APPLICATION
     Route: 062

REACTIONS (2)
  - APHASIA [None]
  - CEREBROVASCULAR ACCIDENT [None]
